FAERS Safety Report 23704858 (Version 2)
Quarter: 2024Q2

REPORT INFORMATION
  Report Type: Spontaneous
  Country: US (occurrence: US)
  Receive Date: 20240404
  Receipt Date: 20240628
  Transmission Date: 20240716
  Serious: No
  Sender: FDA-Public Use
  Company Number: US-SA-SAC20240327001214

PATIENT
  Age: 3 Year
  Sex: Female

DRUGS (1)
  1. DUPIXENT [Suspect]
     Active Substance: DUPILUMAB
     Indication: Asthma
     Dosage: 200 MG, Q4W
     Route: 058
     Dates: start: 20240206

REACTIONS (10)
  - Wheezing [Unknown]
  - Nightmare [Unknown]
  - Respiratory disorder [Unknown]
  - Rhinorrhoea [Unknown]
  - Cough [Unknown]
  - Pruritus [Unknown]
  - Middle insomnia [Unknown]
  - Product administered to patient of inappropriate age [Unknown]
  - Rash [Unknown]
  - Therapeutic response shortened [Unknown]

NARRATIVE: CASE EVENT DATE: 20240101
